FAERS Safety Report 21182965 (Version 1)
Quarter: 2022Q3

REPORT INFORMATION
  Report Type: Report from Study
  Country: MX (occurrence: MX)
  Receive Date: 20220808
  Receipt Date: 20220808
  Transmission Date: 20221027
  Serious: Yes (Other)
  Sender: FDA-Public Use
  Company Number: MX-NOVARTISPH-NVSC2022MX178130

PATIENT
  Sex: Male
  Weight: 80 kg

DRUGS (2)
  1. EXELON [Suspect]
     Active Substance: RIVASTIGMINE TARTRATE
     Indication: Cognitive disorder
     Dosage: 1 DOSAGE FORM, QD (4.6 MG) (PATCH 5 CM2, 9 MG RIVASTIGMINE BASE), (START DATE: 12 OR 13 YEARS AGO)
     Route: 062
  2. EXELON [Suspect]
     Active Substance: RIVASTIGMINE TARTRATE
     Dosage: 0.5 DOSAGE FORM, QD (9.5 MG) (PATCH 15 CM2, 27 MG RIVASTIGMINE BASE), (EVERY 72 HOURS), (START SATE:
     Route: 062

REACTIONS (5)
  - Platelet count decreased [Recovered/Resolved]
  - Accident [Unknown]
  - Body height decreased [Recovered/Resolved]
  - Wrong technique in product usage process [Unknown]
  - Off label use [Unknown]
